FAERS Safety Report 10058354 (Version 1)
Quarter: 2014Q2

REPORT INFORMATION
  Report Type: Spontaneous
  Country: US (occurrence: US)
  Receive Date: 20140404
  Receipt Date: 20140404
  Transmission Date: 20141212
  Serious: Yes (Other)
  Sender: FDA-Public Use
  Company Number: US-SUN PHARMACEUTICAL INDUSTRIES LTD-2014SUN00721

PATIENT
  Age: 84 Year
  Sex: Female

DRUGS (3)
  1. ZOLEDRONIC ACID INJECTION 4MG/ 5 ML [Suspect]
     Indication: OSTEOPOROSIS
  2. ACETAMINOPHEN [Concomitant]
  3. DIPHENHYDRAMINE [Concomitant]

REACTIONS (2)
  - Temporal arteritis [Recovering/Resolving]
  - Blindness [Not Recovered/Not Resolved]
